FAERS Safety Report 6067451-3 (Version None)
Quarter: 2009Q1

REPORT INFORMATION
  Report Type: 
  Country: None (occurrence: None)
  Receive Date: 20090205
  Receipt Date: 20090126
  Transmission Date: 20090719
  Serious: Yes (Hospitalization, Other)
  Sender: FDA-Public Use
  Company Number: US-PFIZER INC-2008005652

PATIENT
  Sex: Female
  Weight: 70 kg

DRUGS (2)
  1. AROMASIN [Suspect]
     Indication: BREAST CANCER
     Dosage: UNK
     Route: 048
     Dates: start: 20070101, end: 20080110
  2. SYNTHROID [Concomitant]
     Dosage: 50 UG, DAILY

REACTIONS (1)
  - ATRIOVENTRICULAR BLOCK COMPLETE [None]
